FAERS Safety Report 25939937 (Version 2)
Quarter: 2025Q4

REPORT INFORMATION
  Report Type: Spontaneous
  Country: US (occurrence: US)
  Receive Date: 20251020
  Receipt Date: 20251027
  Transmission Date: 20260117
  Serious: No
  Sender: Kenvue
  Company Number: US-KENVUE-20250913856

PATIENT
  Sex: Male

DRUGS (4)
  1. TYLENOL [Suspect]
     Active Substance: ACETAMINOPHEN
     Indication: Tremor
     Dosage: 2 DOSAGE FORM, ONCE OR TWICE A MONTH
     Route: 065
     Dates: start: 1980
  2. TYLENOL [Suspect]
     Active Substance: ACETAMINOPHEN
     Indication: Pain
  3. TYLENOL EXTRA STRENGTH [Suspect]
     Active Substance: ACETAMINOPHEN
     Indication: Tremor
     Dosage: 2 DOSAGE , ONCE OR TWICE A MONTH
     Route: 065
  4. TYLENOL EXTRA STRENGTH [Suspect]
     Active Substance: ACETAMINOPHEN
     Indication: Pain

REACTIONS (2)
  - Product use in unapproved indication [Unknown]
  - Therapeutic response unexpected [Unknown]

NARRATIVE: CASE EVENT DATE: 19800101
